FAERS Safety Report 15377057 (Version 1)
Quarter: 2018Q3

REPORT INFORMATION
  Report Type: Spontaneous
  Country: IL (occurrence: IL)
  Receive Date: 20180913
  Receipt Date: 20180913
  Transmission Date: 20181010
  Serious: Yes (Death, Hospitalization)
  Sender: FDA-Public Use
  Company Number: IL-ROCHE-2180749

PATIENT
  Age: 49 Year
  Sex: Female
  Weight: 50 kg

DRUGS (4)
  1. VALCYTE [Suspect]
     Active Substance: VALGANCICLOVIR HYDROCHLORIDE
     Indication: PRODUCT USED FOR UNKNOWN INDICATION
     Route: 065
     Dates: start: 20180601
  2. ITACITINIB [Suspect]
     Active Substance: ITACITINIB
     Indication: ACUTE GRAFT VERSUS HOST DISEASE
     Route: 048
     Dates: start: 20180506, end: 20180617
  3. TAVANIC [Concomitant]
     Active Substance: LEVOFLOXACIN
     Route: 042
  4. ERAXIS [Concomitant]
     Active Substance: ANIDULAFUNGIN
     Route: 042
     Dates: end: 20180625

REACTIONS (3)
  - Sepsis [Fatal]
  - Febrile neutropenia [Not Recovered/Not Resolved]
  - Mucormycosis [Fatal]

NARRATIVE: CASE EVENT DATE: 20180618
